FAERS Safety Report 7811685-1 (Version None)
Quarter: 2011Q4

REPORT INFORMATION
  Report Type: 
  Country: None (occurrence: None)
  Receive Date: 20111013
  Receipt Date: 20111003
  Transmission Date: 20120403
  Serious: Yes (Other)
  Sender: FDA-Public Use
  Company Number: SE-NOVOPROD-333712

PATIENT

DRUGS (1)
  1. NOVORAPID FLEXPEN [Suspect]
     Indication: TYPE 1 DIABETES MELLITUS
     Dosage: 0.4 IU PER HOUR
     Route: 058
     Dates: start: 20070101

REACTIONS (2)
  - COMA [None]
  - HYPOGLYCAEMIA [None]
